FAERS Safety Report 14850419 (Version 1)
Quarter: 2018Q2

REPORT INFORMATION
  Report Type: Spontaneous
  Country: GB (occurrence: GB)
  Receive Date: 20180505
  Receipt Date: 20180505
  Transmission Date: 20180711
  Serious: Yes (Other)
  Sender: FDA-Public Use
  Company Number: GB-AUROBINDO-AUR-APL-2018-023925

PATIENT
  Age: 12 Year
  Sex: Female

DRUGS (1)
  1. VORICONAZOLE FILM COATED TABLET [Suspect]
     Active Substance: VORICONAZOLE
     Indication: LOWER RESPIRATORY TRACT INFECTION FUNGAL
     Dosage: 900 MILLIGRAM, ONCE A DAY, STARTED ABOUT 4 MONTHS AGO
     Route: 048

REACTIONS (3)
  - Gamma-glutamyltransferase increased [Not Recovered/Not Resolved]
  - Blood alkaline phosphatase increased [Not Recovered/Not Resolved]
  - Product use issue [Not Recovered/Not Resolved]
